FAERS Safety Report 4502165-X (Version None)
Quarter: 2004Q4

REPORT INFORMATION
  Report Type: 
  Country: None (occurrence: None)
  Receive Date: 20041109
  Receipt Date: 20041025
  Transmission Date: 20050328
  Serious: Yes (Hospitalization)
  Sender: FDA-Public Use
  Company Number: EWC041041178

PATIENT
  Age: 62 Year
  Sex: Female

DRUGS (4)
  1. GEMCITABINE HYDROCHLORIDE-IV (GEMCITABINE) [Suspect]
     Indication: OVARIAN CANCER
     Dosage: 800 MG/M2/1 OTHER
     Route: 050
     Dates: start: 20041005
  2. MS CONTIN [Concomitant]
  3. VOLTAREN [Concomitant]
  4. DURAGESIC [Concomitant]

REACTIONS (1)
  - INTESTINAL OBSTRUCTION [None]
